FAERS Safety Report 7713034-6 (Version None)
Quarter: 2011Q3

REPORT INFORMATION
  Report Type: 
  Country: None (occurrence: None)
  Receive Date: 20110826
  Receipt Date: 20110817
  Transmission Date: 20111222
  Serious: Yes (Congenital Anomaly)
  Sender: FDA-Public Use
  Company Number: GB-UCBSA-037630

PATIENT

DRUGS (1)
  1. LEVETIRACETAM [Suspect]
     Route: 064

REACTIONS (3)
  - TALIPES [None]
  - HAEMANGIOMA OF SKIN [None]
  - MATERNAL EXPOSURE DURING PREGNANCY [None]
